FAERS Safety Report 5202848-2 (Version None)
Quarter: 2006Q4

REPORT INFORMATION
  Report Type: 
  Country: None (occurrence: None)
  Receive Date: 20061016
  Receipt Date: 20060913
  Transmission Date: 20070319
  Serious: No
  Sender: FDA-Public Use
  Company Number: 2006SP003281

PATIENT
  Sex: Male
  Weight: 104.3273 kg

DRUGS (2)
  1. LUNESTA [Suspect]
     Dosage: 2 MG PRN ORAL
     Route: 048
     Dates: start: 20060829
  2. RESTORIL [Concomitant]

REACTIONS (2)
  - DRUG INEFFECTIVE [None]
  - INSOMNIA [None]
